FAERS Safety Report 4489108-2 (Version None)
Quarter: 2004Q4

REPORT INFORMATION
  Report Type: 
  Country: None (occurrence: None)
  Receive Date: 20041029
  Receipt Date: 20041019
  Transmission Date: 20050328
  Serious: Yes (Hospitalization)
  Sender: FDA-Public Use
  Company Number: US-ROCHE-383989

PATIENT
  Age: 47 Year
  Sex: Female

DRUGS (3)
  1. PEGASYS [Suspect]
     Indication: HEPATITIS C
     Route: 058
     Dates: start: 20040129, end: 20041015
  2. COPEGUS [Suspect]
     Indication: HEPATITIS C
     Route: 048
     Dates: start: 20040129, end: 20041015
  3. HYDROCHLOROTHIAZIDE [Concomitant]
     Route: 048
     Dates: start: 19990615

REACTIONS (15)
  - AMNESIA [None]
  - ARTERIAL RUPTURE [None]
  - CATHETER RELATED COMPLICATION [None]
  - DEPRESSED LEVEL OF CONSCIOUSNESS [None]
  - DIAPHRAGMATIC DISORDER [None]
  - DIFFICULTY IN WALKING [None]
  - DYSPNOEA [None]
  - FATIGUE [None]
  - HAEMOGLOBIN DECREASED [None]
  - HEADACHE [None]
  - INFLUENZA LIKE ILLNESS [None]
  - LOCALISED OEDEMA [None]
  - PYREXIA [None]
  - WEIGHT DECREASED [None]
  - WHITE BLOOD CELL COUNT DECREASED [None]
